FAERS Safety Report 22334512 (Version 1)
Quarter: 2023Q2

REPORT INFORMATION
  Report Type: Spontaneous
  Country: US (occurrence: None)
  Receive Date: 20230517
  Receipt Date: 20230517
  Transmission Date: 20230721
  Serious: No
  Sender: FDA-Public Use
  Company Number: US-ROCHE-3108938

PATIENT
  Sex: Female

DRUGS (4)
  1. ACTEMRA [Suspect]
     Active Substance: TOCILIZUMAB
     Indication: Bell^s palsy
     Dosage: STRENGTH 0.9MLHOLD FOR FEVER,I NFECTION OR SURGERY.
     Route: 058
     Dates: start: 20200212
  2. CLONIDINE [Concomitant]
     Active Substance: CLONIDINE
  3. COREG [Concomitant]
     Active Substance: CARVEDILOL
  4. ESCITALOPRAM OXALATE [Concomitant]
     Active Substance: ESCITALOPRAM OXALATE

REACTIONS (1)
  - Nasopharyngitis [Unknown]
